FAERS Safety Report 19749697 (Version 1)
Quarter: 2021Q3

REPORT INFORMATION
  Report Type: Report from Study
  Country: CA (occurrence: CA)
  Receive Date: 20210826
  Receipt Date: 20210826
  Transmission Date: 20211014
  Serious: Yes (Other)
  Sender: FDA-Public Use
  Company Number: PHHY2016CA007783

PATIENT
  Age: 43 Year
  Sex: Female

DRUGS (3)
  1. SANDOSTATIN LAR DEPOT [Suspect]
     Active Substance: OCTREOTIDE ACETATE
  2. SANDOSTATIN LAR DEPOT [Suspect]
     Active Substance: OCTREOTIDE ACETATE
     Indication: NEUROFIBROMATOSIS
     Dosage: 30 MG, QMO
     Route: 030
     Dates: start: 20130712
  3. SANDOSTATIN LAR DEPOT [Suspect]
     Active Substance: OCTREOTIDE ACETATE
     Indication: MENINGIOMA
     Dosage: 30 MG, QMO
     Route: 030
     Dates: start: 20130712

REACTIONS (4)
  - Speech disorder [Unknown]
  - Product use in unapproved indication [Unknown]
  - Illness [Unknown]
  - Deafness [Unknown]

NARRATIVE: CASE EVENT DATE: 20130712
